FAERS Safety Report 18739724 (Version 5)
Quarter: 2021Q2

REPORT INFORMATION
  Report Type: Report from Study
  Country: ZA (occurrence: ZA)
  Receive Date: 20210114
  Receipt Date: 20210507
  Transmission Date: 20210717
  Serious: Yes (Hospitalization, Other)
  Sender: FDA-Public Use
  Company Number: ZA-VIIV HEALTHCARE LIMITED-ZA2021GSK007271

PATIENT
  Sex: Male
  Weight: 3.7 kg

DRUGS (2)
  1. CABOTEGRAVIR [Suspect]
     Active Substance: CABOTEGRAVIR
     Indication: PROPHYLAXIS AGAINST HIV INFECTION
     Dosage: 30 MG, QD
     Route: 064
     Dates: start: 20181011, end: 20181113
  2. CABOTEGRAVIR [Suspect]
     Active Substance: CABOTEGRAVIR
     Indication: PROPHYLAXIS AGAINST HIV INFECTION
     Dosage: 600 MG, Z(OTHER(2 DOSES 4 WEEKS APART AND EVERY 8 WEEKS THEREAFTER))
     Route: 030
     Dates: start: 20181114, end: 20200506

REACTIONS (1)
  - Foetal distress syndrome [Recovered/Resolved]

NARRATIVE: CASE EVENT DATE: 20201202
